FAERS Safety Report 6683239-4 (Version None)
Quarter: 2010Q2

REPORT INFORMATION
  Report Type: 
  Country: None (occurrence: None)
  Receive Date: 20100415
  Receipt Date: 20100406
  Transmission Date: 20101027
  Serious: Yes (Other)
  Sender: FDA-Public Use
  Company Number: US-JNJFOC-20090607807

PATIENT
  Sex: Male

DRUGS (4)
  1. LEVAQUIN [Suspect]
     Indication: CELLULITIS
     Route: 065
  2. LEVAQUIN [Suspect]
     Indication: LUNG INFECTION
     Route: 065
  3. PREDNISONE [Suspect]
     Indication: CHRONIC OBSTRUCTIVE PULMONARY DISEASE
     Route: 065
  4. CLINDAMYCIN [Concomitant]
     Route: 065

REACTIONS (3)
  - MUSCLE ATROPHY [None]
  - TENDON RUPTURE [None]
  - TENDONITIS [None]
